FAERS Safety Report 24716921 (Version 1)
Quarter: 2024Q4

REPORT INFORMATION
  Report Type: Report from Study
  Country: US (occurrence: US)
  Receive Date: 20241210
  Receipt Date: 20241210
  Transmission Date: 20250115
  Serious: Yes (Hospitalization)
  Sender: ABBVIE
  Company Number: US-ABBVIE-6038351

PATIENT
  Age: 22 Year
  Sex: Female

DRUGS (4)
  1. SKYRIZI [Suspect]
     Active Substance: RISANKIZUMAB-RZAA
     Indication: Crohn^s disease
     Dosage: WEEK 12
     Route: 058
     Dates: start: 20241112
  2. SKYRIZI [Suspect]
     Active Substance: RISANKIZUMAB-RZAA
     Indication: Crohn^s disease
     Dosage: WEEK 0    600 MG/ 10 ML
     Route: 042
     Dates: start: 202408, end: 202408
  3. SKYRIZI [Suspect]
     Active Substance: RISANKIZUMAB-RZAA
     Indication: Crohn^s disease
     Dosage: WEEK 4   600 MG/ 10 ML
     Route: 042
     Dates: start: 202409, end: 202409
  4. SKYRIZI [Suspect]
     Active Substance: RISANKIZUMAB-RZAA
     Indication: Crohn^s disease
     Dosage: WEEK 8    600 MG/ 10 ML
     Route: 042
     Dates: start: 202410, end: 202410

REACTIONS (8)
  - Abscess intestinal [Unknown]
  - Pain [Unknown]
  - Pyrexia [Unknown]
  - Abdominal pain [Unknown]
  - Back pain [Unknown]
  - Headache [Unknown]
  - Urinary tract infection [Unknown]
  - Nausea [Unknown]

NARRATIVE: CASE EVENT DATE: 20240101
